FAERS Safety Report 24678249 (Version 1)
Quarter: 2024Q4

REPORT INFORMATION
  Report Type: Spontaneous
  Country: US (occurrence: US)
  Receive Date: 20241129
  Receipt Date: 20241129
  Transmission Date: 20250115
  Serious: Yes (Other)
  Sender: TEVA
  Company Number: US-TEVA-VS-3266675

PATIENT
  Age: 33 Year
  Sex: Female

DRUGS (2)
  1. AJOVY [Suspect]
     Active Substance: FREMANEZUMAB-VFRM
     Indication: Product used for unknown indication
     Dosage: FORM STRENGTH: 225/1.5MG/ML
     Route: 065
  2. AJOVY [Suspect]
     Active Substance: FREMANEZUMAB-VFRM

REACTIONS (5)
  - Arthritis [Unknown]
  - Intervertebral disc degeneration [Unknown]
  - Fibromyalgia [Unknown]
  - Migraine [Unknown]
  - Product dose omission issue [Unknown]
